FAERS Safety Report 6856102-3 (Version None)
Quarter: 2010Q3

REPORT INFORMATION
  Report Type: 
  Country: None (occurrence: None)
  Receive Date: 20100715
  Receipt Date: 20100715
  Transmission Date: 20110219
  Serious: Yes (Other)
  Sender: FDA-Public Use
  Company Number: None

PATIENT
  Age: 77 Year
  Sex: Male
  Weight: 67.586 kg

DRUGS (1)
  1. AMOXICILLIN [Suspect]
     Indication: GINGIVAL INFECTION
     Dosage: -1- CAPSULE 3X/DAY EVERY 8 HOURS PO
     Route: 048
     Dates: start: 20100708, end: 20100709

REACTIONS (7)
  - ABDOMINAL DISCOMFORT [None]
  - CHILLS [None]
  - DRUG HYPERSENSITIVITY [None]
  - PRODUCT QUALITY ISSUE [None]
  - PYREXIA [None]
  - RASH [None]
  - VOMITING [None]
